FAERS Safety Report 10286921 (Version 1)
Quarter: 2014Q3

REPORT INFORMATION
  Report Type: Spontaneous
  Country: IT (occurrence: None)
  Receive Date: 20140707
  Receipt Date: 20140707
  Transmission Date: 20150326
  Serious: Yes (Hospitalization)
  Sender: FDA-Public Use
  Company Number: AUR-APL-2014-07078

PATIENT
  Age: 72 Year
  Sex: Male

DRUGS (5)
  1. METFORAL (METFORMIN HYDROCHLORIDE) [Concomitant]
  2. SINTROM (ACENOCOUMAROL) [Concomitant]
     Active Substance: ACENOCOUMAROL
  3. LANOXIN [Concomitant]
     Active Substance: DIGOXIN
  4. RAMIPRIL/HYDROCHLORTHIAZIDE (HYDROCHLOROTHIAZIDE, RAMIPRIL) [Concomitant]
  5. METOPROLOL (METOPROLOL) [Suspect]
     Active Substance: METOPROLOL
     Indication: PRODUCT USED FOR UNKNOWN INDICATION
     Route: 048
     Dates: start: 20140201, end: 20140608

REACTIONS (4)
  - Dyspnoea [None]
  - Bradyarrhythmia [None]
  - Asthenia [None]
  - Overdose [None]

NARRATIVE: CASE EVENT DATE: 20140607
